FAERS Safety Report 12240079 (Version 2)
Quarter: 2016Q2

REPORT INFORMATION
  Report Type: Spontaneous
  Country: ES (occurrence: ES)
  Receive Date: 20160405
  Receipt Date: 20160412
  Transmission Date: 20160815
  Serious: Yes (Hospitalization, Other)
  Sender: FDA-Public Use
  Company Number: ES-GILEAD-2016-0206332

PATIENT
  Age: 48 Year
  Sex: Male
  Weight: 72 kg

DRUGS (6)
  1. PREDNISONE. [Concomitant]
     Active Substance: PREDNISONE
     Indication: LIVER TRANSPLANT
     Dosage: 45 MG, UNK
     Route: 048
     Dates: start: 2015
  2. CELLCEPT [Concomitant]
     Active Substance: MYCOPHENOLATE MOFETIL\MYCOPHENOLATE MOFETIL HYDROCHLORIDE
     Indication: LIVER TRANSPLANT
     Dosage: 500 UNKNOWN, UNK
     Route: 048
     Dates: start: 2008
  3. HARVONI [Suspect]
     Active Substance: LEDIPASVIR\SOFOSBUVIR
     Indication: HEPATITIS C
     Dosage: 1 DF, UNK
     Route: 048
     Dates: start: 20160211
  4. LAMIVUDINE. [Concomitant]
     Active Substance: LAMIVUDINE
     Indication: LIVER TRANSPLANT
     Dosage: 100 UNKNOWN, UNK
     Route: 048
     Dates: start: 2008
  5. TACROLIMUS. [Concomitant]
     Active Substance: TACROLIMUS
     Indication: LIVER TRANSPLANT
     Dosage: 4 MG, UNK
     Dates: start: 2008
  6. LOSARTAN. [Concomitant]
     Active Substance: LOSARTAN
     Indication: HYPERTENSION
     Dosage: 25 UNKNOWN, UNK
     Route: 048
     Dates: start: 2015

REACTIONS (4)
  - Arterial thrombosis [Unknown]
  - Pyrexia [Unknown]
  - Liver disorder [Unknown]
  - Biliary tract infection [Unknown]

NARRATIVE: CASE EVENT DATE: 2016
